FAERS Safety Report 9745971 (Version 3)
Quarter: 2013Q4

REPORT INFORMATION
  Report Type: Spontaneous
  Country: GB (occurrence: GB)
  Receive Date: 20131211
  Receipt Date: 20131212
  Transmission Date: 20140711
  Serious: Yes (Other)
  Sender: FDA-Public Use
  Company Number: GB-PFIZER INC-2013085556

PATIENT
  Age: 25 Year
  Sex: Female
  Weight: 79 kg

DRUGS (6)
  1. VENLAFAXINE HCL [Suspect]
     Indication: DEPRESSION
     Dosage: 75 MG, UNK
     Dates: start: 20120515
  2. VENLAFAXINE HCL [Suspect]
     Dosage: 225 MG, 1X/DAY
  3. VENLAFAXINE HCL [Suspect]
     Dosage: 150 MG, UNK
  4. VENLAFAXINE HCL [Suspect]
     Dosage: 75 MG, UNK
  5. VENLAFAXINE HCL [Suspect]
     Dosage: UNK
     Dates: end: 20130405
  6. SERTRALINE HCL [Suspect]
     Indication: DEPRESSION
     Dosage: 50 MG, 1X/DAY
     Dates: start: 20130321

REACTIONS (2)
  - Pre-eclampsia [Unknown]
  - Drug withdrawal syndrome [Unknown]
